FAERS Safety Report 9578820 (Version 1)
Quarter: 2013Q4

REPORT INFORMATION
  Report Type: Spontaneous
  Country: US (occurrence: US)
  Receive Date: 20131001
  Receipt Date: 20131001
  Transmission Date: 20140711
  Serious: No
  Sender: FDA-Public Use
  Company Number: US-AMGEN-USASP2013014462

PATIENT
  Sex: Female
  Weight: 58.96 kg

DRUGS (8)
  1. ENBREL [Suspect]
     Indication: RHEUMATOID ARTHRITIS
     Dosage: 25 MG, 72-96 HOURS APART
     Route: 058
  2. PLAQUENIL                          /00072602/ [Concomitant]
     Dosage: 200 MG, UNK
  3. ARAVA [Concomitant]
     Dosage: 20 MG, UNK
  4. CETRIZINE [Concomitant]
     Dosage: 5 MG, UNK
  5. FISH OIL [Concomitant]
     Dosage: UNK
  6. CALCIUM +D /00944201/ [Suspect]
     Dosage: UNK
  7. OSTEO BI-FLEX [Concomitant]
     Dosage: UNK
  8. VITAMIN D                          /00107901/ [Concomitant]
     Dosage: 1000 UNIT, UNK

REACTIONS (1)
  - Drug ineffective [Unknown]
